FAERS Safety Report 25690178 (Version 1)
Quarter: 2025Q3

REPORT INFORMATION
  Report Type: Spontaneous
  Country: US (occurrence: None)
  Receive Date: 20250815
  Receipt Date: 20250815
  Transmission Date: 20251021
  Serious: No
  Sender: FDA-CTU
  Company Number: None

PATIENT
  Age: 44 Year
  Sex: Female

DRUGS (9)
  1. KESIMPTA [Suspect]
     Active Substance: OFATUMUMAB
     Indication: Multiple sclerosis
     Route: 058
     Dates: start: 20250528
  2. BUPROPION [Concomitant]
     Active Substance: BUPROPION
  3. ESTRADIOL [Concomitant]
     Active Substance: ESTRADIOL
  4. NALTREXONE [Concomitant]
     Active Substance: NALTREXONE
  5. PROPRANOLOL HYDROCHLORIDE [Concomitant]
     Active Substance: PROPRANOLOL HYDROCHLORIDE
  6. TRINTELLIX [Concomitant]
     Active Substance: VORTIOXETINE HYDROBROMIDE
  7. Vitamin D 5000 unit [Concomitant]
  8. Probiotic caps [Concomitant]
  9. XANAX [Concomitant]
     Active Substance: ALPRAZOLAM

REACTIONS (6)
  - Headache [None]
  - Neck pain [None]
  - Pain [None]
  - Arthralgia [None]
  - Head discomfort [None]
  - Impaired work ability [None]

NARRATIVE: CASE EVENT DATE: 20250801
